FAERS Safety Report 8244719-3 (Version None)
Quarter: 2012Q1

REPORT INFORMATION
  Report Type: 
  Country: None (occurrence: None)
  Receive Date: 20120329
  Receipt Date: 20110314
  Transmission Date: 20120608
  Serious: No
  Sender: FDA-Public Use
  Company Number: US-MYLANLABS-2011S1003196

PATIENT
  Age: 56 Year
  Sex: Male

DRUGS (14)
  1. PERCOCET [Concomitant]
     Indication: BREAKTHROUGH PAIN
     Route: 048
  2. SONATA [Concomitant]
  3. INSULIN [Concomitant]
     Indication: DIABETES MELLITUS
     Route: 058
  4. ATENOLOL [Concomitant]
  5. CLONOPIN [Concomitant]
  6. GLYBURIDE [Concomitant]
  7. LANTUS [Concomitant]
  8. FENTANYL-100 [Suspect]
     Indication: BACK PAIN
     Dosage: QOD
     Route: 062
     Dates: start: 20110204, end: 20110217
  9. FENTANYL-100 [Suspect]
     Indication: ARTHRALGIA
     Dosage: QOD
     Route: 062
     Dates: start: 20110204, end: 20110217
  10. BUSPAR [Concomitant]
  11. FENTANYL-100 [Suspect]
     Indication: NECK PAIN
     Dosage: QOD
     Route: 062
     Dates: start: 20110204, end: 20110217
  12. LISINOPRIL AND HYDROCHLOROTHIAZIDE [Concomitant]
     Dosage: 20MG/25MG
  13. CYMBALTA [Concomitant]
  14. METFORMIN HCL [Concomitant]

REACTIONS (6)
  - ARTHRALGIA [None]
  - WITHDRAWAL SYNDROME [None]
  - PANIC ATTACK [None]
  - BACK PAIN [None]
  - DRUG EFFECT DECREASED [None]
  - NECK PAIN [None]
